FAERS Safety Report 7148288-0 (Version None)
Quarter: 2010Q4

REPORT INFORMATION
  Report Type: 
  Country: None (occurrence: None)
  Receive Date: 20101124
  Receipt Date: 20101111
  Transmission Date: 20110411
  Serious: Yes (Other)
  Sender: FDA-Public Use
  Company Number: 1000017403

PATIENT
  Age: 29 Year

DRUGS (10)
  1. MILNACIPRAN (MILNACIPRAN HYDROCHLORIDE) (CAPSULES) [Suspect]
     Dosage: 100 MG,ORAL
     Route: 048
  2. APIXABAN (APIXABAN) [Suspect]
     Indication: EMBOLISM ARTERIAL
     Dosage: 10 MG (10 MG,1 IN 1 D),ORAL
     Route: 048
     Dates: start: 20101021, end: 20101022
  3. WARFARIN SODIUM [Suspect]
     Indication: EMBOLISM ARTERIAL
     Dosage: 6 MG (6 MG,1 IN 1 D),ORAL
     Route: 048
     Dates: start: 20101021, end: 20101021
  4. ENOXAPARIN SODIUM [Suspect]
     Indication: EMBOLISM ARTERIAL
     Dosage: 87 ML (87 ML,1 IN 1 D),SUBCUTANEOUS
     Route: 058
     Dates: start: 20101021, end: 20101022
  5. ABILIFY [Suspect]
     Dosage: 10 MG
  6. PLACEBO [Suspect]
     Indication: EMBOLISM ARTERIAL
     Dates: start: 20101021, end: 20101021
  7. PROPANOLOL HYDROCHLORIDE (PROPANOLOL HYDROCHLORIDE) (PROPANOLOL HYDROC [Concomitant]
  8. LEPTICUR (TROPATEPINE HYDROCHLORIDE) (TROPATEPINE HYDROCHLORIDE) [Concomitant]
  9. LEVOTHYROXINE (LEVOTHYROXINE SODIUM) (LEVOTHYROXINE SODIUM) [Concomitant]
  10. INEXIUM (ESOMEPRAZOLE) (ESOMEPRAZOLE) [Concomitant]

REACTIONS (1)
  - PSYCHIATRIC DECOMPENSATION [None]
